FAERS Safety Report 10495107 (Version 2)
Quarter: 2015Q2

REPORT INFORMATION
  Report Type: Report from Study
  Country: JP (occurrence: JP)
  Receive Date: 20141003
  Receipt Date: 20150506
  Transmission Date: 20150821
  Serious: Yes (Hospitalization)
  Sender: FDA-Public Use
  Company Number: JP-SA-2014SA134302

PATIENT
  Age: 74 Year
  Sex: Female
  Weight: 45 kg

DRUGS (7)
  1. ADALAT [Concomitant]
     Active Substance: NIFEDIPINE
     Route: 048
  2. HALCION [Concomitant]
     Active Substance: TRIAZOLAM
     Route: 048
  3. MAGNESIUM CARBONATE/ALUMINIUM GLYCINATE/ACETYLSALICYLIC ACID [Concomitant]
     Route: 048
  4. PLAVIX [Suspect]
     Active Substance: CLOPIDOGREL BISULFATE
     Indication: PERIPHERAL ARTERIAL OCCLUSIVE DISEASE
     Route: 048
     Dates: start: 20130327
  5. GASTER [Concomitant]
     Active Substance: FAMOTIDINE
     Indication: PROPHYLAXIS
     Dosage: 20 MG AT AN UNSPECIFIED INTERVAL
     Route: 048
  6. WYPAX [Concomitant]
     Active Substance: LORAZEPAM
     Route: 048
  7. MEVALOTIN [Concomitant]
     Active Substance: PRAVASTATIN SODIUM
     Route: 048

REACTIONS (3)
  - Condition aggravated [Recovering/Resolving]
  - Intermittent claudication [Recovering/Resolving]
  - Therapeutic response decreased [Unknown]

NARRATIVE: CASE EVENT DATE: 20140308
